FAERS Safety Report 5376511-1 (Version None)
Quarter: 2007Q3

REPORT INFORMATION
  Report Type: 
  Country: None (occurrence: None)
  Receive Date: 20070702
  Receipt Date: 20070621
  Transmission Date: 20080115
  Serious: Yes (Other)
  Sender: FDA-Public Use
  Company Number: DE-SHR-DE-2007-023747

PATIENT
  Sex: Female
  Weight: 100 kg

DRUGS (7)
  1. MAGNEVIST [Suspect]
     Dosage: 20 ML, 1 DOSE
     Dates: start: 20040818, end: 20040818
  2. MAGNEVIST [Suspect]
     Dosage: UNK, 1 DOSE
     Dates: start: 20040909, end: 20040909
  3. MAGNEVIST [Suspect]
     Dosage: 21 ML, 1 DOSE
     Dates: start: 20040924, end: 20040924
  4. MAGNEVIST [Suspect]
     Dosage: 20 ML, 1 DOSE
     Dates: start: 20041103, end: 20041103
  5. MAGNEVIST [Suspect]
     Dosage: 20 ML, UNK
     Dates: start: 20041216, end: 20041216
  6. MAGNEVIST [Suspect]
     Dosage: 33 ML, 1 DOSE
     Dates: start: 20050106, end: 20050106
  7. MAGNEVIST [Suspect]
     Dosage: UNK, 1 DOSE
     Dates: start: 20050228, end: 20050228

REACTIONS (1)
  - NEPHROGENIC SYSTEMIC FIBROSIS [None]
